FAERS Safety Report 9830556 (Version 2)
Quarter: 2014Q1

REPORT INFORMATION
  Report Type: Spontaneous
  Country: CA (occurrence: CA)
  Receive Date: 20140120
  Receipt Date: 20140120
  Transmission Date: 20141002
  Serious: Yes (Other)
  Sender: FDA-Public Use
  Company Number: CA-BAYER-2014-000831

PATIENT
  Sex: Female

DRUGS (1)
  1. CANESTEN [Suspect]

REACTIONS (4)
  - Cystitis [None]
  - Urinary retention [None]
  - Burning sensation [Not Recovered/Not Resolved]
  - Incorrect route of drug administration [None]
